FAERS Safety Report 8141647-9 (Version None)
Quarter: 2012Q1

REPORT INFORMATION
  Report Type: 
  Country: None (occurrence: None)
  Receive Date: 20120216
  Receipt Date: 20120202
  Transmission Date: 20120608
  Serious: Yes (Other)
  Sender: FDA-Public Use
  Company Number: CZ-CELGENEUS-217-21880-12012363

PATIENT
  Sex: Male
  Weight: 83 kg

DRUGS (21)
  1. CARFILZOMIB [Suspect]
     Indication: MULTIPLE MYELOMA
     Dosage: 41 MILLIGRAM
     Route: 065
     Dates: start: 20110207, end: 20110208
  2. CARFILZOMIB [Suspect]
     Route: 065
     Dates: start: 20111228, end: 20111228
  3. ZYRTEC [Concomitant]
     Dosage: 10 MILLIGRAM
     Route: 048
     Dates: start: 20110919
  4. CALCIUM CARBONATE [Concomitant]
     Indication: MULTIPLE MYELOMA
     Dosage: 4 DOSAGE FORMS
     Route: 048
     Dates: start: 20110418
  5. HERPESIN [Concomitant]
     Indication: ANTIVIRAL PROPHYLAXIS
     Dosage: 400 MILLIGRAM
     Route: 048
     Dates: start: 20110206
  6. REVLIMID [Suspect]
     Dosage: 5 MILLIGRAM
     Route: 048
     Dates: start: 20111017, end: 20111030
  7. CARFILZOMIB [Suspect]
     Route: 065
     Dates: start: 20110214, end: 20110222
  8. DEXAMETHASONE [Suspect]
     Indication: MULTIPLE MYELOMA
     Route: 065
     Dates: start: 20110207, end: 20120103
  9. FUROSEMIDE [Concomitant]
     Dosage: 20 MILLIGRAM
     Route: 048
     Dates: start: 20111114
  10. REVLIMID [Suspect]
     Indication: MULTIPLE MYELOMA
     Route: 048
     Dates: start: 20110207, end: 20110319
  11. CARFILZOMIB [Suspect]
     Route: 065
     Dates: start: 20110307, end: 20111227
  12. EPOGEN [Concomitant]
     Route: 058
     Dates: start: 20110712, end: 20111228
  13. ZOFRAN [Concomitant]
     Route: 041
     Dates: start: 20110404
  14. ZOMETA [Concomitant]
     Route: 041
     Dates: start: 20080609
  15. REVLIMID [Suspect]
     Dosage: 15 MILLIGRAM
     Route: 048
     Dates: start: 20110808, end: 20110808
  16. REVLIMID [Suspect]
     Dosage: 10 MILLIGRAM
     Route: 048
     Dates: start: 20110919, end: 20110925
  17. EUPHYLIN [Concomitant]
     Indication: CHRONIC OBSTRUCTIVE PULMONARY DISEASE
     Dosage: 400 MILLIGRAM
     Route: 048
     Dates: start: 20110321
  18. FILGRASTIM [Concomitant]
     Indication: NEUTROPENIA
     Route: 058
     Dates: start: 20110906
  19. LANSOPROL [Concomitant]
     Dosage: 15 MILLIGRAM
     Route: 048
     Dates: start: 20110206
  20. REVLIMID [Suspect]
     Route: 048
     Dates: start: 20110404, end: 20110711
  21. SODIUM DIHYDRATE PHOSPHATE [Concomitant]
     Route: 041
     Dates: start: 20111122, end: 20111228

REACTIONS (1)
  - ACUTE MYELOID LEUKAEMIA [None]
